FAERS Safety Report 5709365-1 (Version None)
Quarter: 2008Q2

REPORT INFORMATION
  Report Type: 
  Country: None (occurrence: None)
  Receive Date: 20080418
  Receipt Date: 20080410
  Transmission Date: 20081010
  Serious: Yes (Hospitalization)
  Sender: FDA-Public Use
  Company Number: JP-BRISTOL-MYERS SQUIBB COMPANY-14148498

PATIENT
  Age: 74 Year
  Sex: Female
  Weight: 53 kg

DRUGS (6)
  1. ABILIFY [Suspect]
     Indication: PSYCHOTIC DISORDER
     Dosage: 6MG QD 10-JAN-08 TO 15-JAN-08; 18MG QD 16-JAN-08 TO 28-JAN-08.
     Route: 048
     Dates: start: 20080116, end: 20080128
  2. NITRAZEPAM [Concomitant]
  3. NORVASC [Concomitant]
  4. THYRADIN S [Concomitant]
  5. LEVOMEPROMAZINE MALEATE [Concomitant]
  6. CORTRIL [Concomitant]

REACTIONS (1)
  - VENTRICULAR EXTRASYSTOLES [None]
